FAERS Safety Report 12695382 (Version 2)
Quarter: 2016Q3

REPORT INFORMATION
  Report Type: Spontaneous
  Country: VN (occurrence: VN)
  Receive Date: 20160829
  Receipt Date: 20160906
  Transmission Date: 20161109
  Serious: Yes (Death)
  Sender: FDA-Public Use
  Company Number: PHHY2016VN117607

PATIENT
  Age: 46 Year
  Sex: Male

DRUGS (2)
  1. CERTICAN [Suspect]
     Active Substance: EVEROLIMUS
     Indication: RENAL TRANSPLANT
     Dosage: 1.25 MG, QD
     Route: 048
     Dates: start: 201310, end: 201408
  2. NEORAL [Suspect]
     Active Substance: CYCLOSPORINE
     Indication: RENAL TRANSPLANT
     Dosage: 1 MG, QD
     Route: 048
     Dates: end: 201408

REACTIONS (2)
  - Pneumonia [Fatal]
  - Haematuria [Unknown]
